FAERS Safety Report 4901493-3 (Version None)
Quarter: 2006Q1

REPORT INFORMATION
  Report Type: 
  Country: None (occurrence: None)
  Receive Date: 20060206
  Receipt Date: 20060127
  Transmission Date: 20060701
  Serious: Yes (Other)
  Sender: FDA-Public Use
  Company Number: US-AVENTIS-200611055US

PATIENT
  Sex: Female

DRUGS (7)
  1. LANTUS [Suspect]
     Indication: DIABETES MELLITUS NON-INSULIN-DEPENDENT
     Dosage: DOSE UNIT: UNITS
     Dates: start: 20040101
  2. AVANDIA [Concomitant]
     Dosage: DOSE: UNKNOWN
  3. ZOCOR [Concomitant]
     Dosage: DOSE: UNKNOWN
  4. LISINOPRIL [Concomitant]
     Dosage: DOSE: UNKNOWN
  5. TRICOR [Concomitant]
     Dosage: DOSE: UNKNOWN
  6. AMITRIPTYLINE HCL [Concomitant]
     Dosage: DOSE: UNKNOWN
  7. SOMA [Concomitant]
     Dosage: DOSE: UNKNOWN

REACTIONS (2)
  - FALL [None]
  - LUMBAR VERTEBRAL FRACTURE [None]
